FAERS Safety Report 7069683-4 (Version None)
Quarter: 2010Q4

REPORT INFORMATION
  Report Type: 
  Country: None (occurrence: None)
  Receive Date: 20101028
  Receipt Date: 20100507
  Transmission Date: 20110411
  Serious: No
  Sender: FDA-Public Use
  Company Number: US-WYE-H15118210

PATIENT
  Sex: Female
  Weight: 55.84 kg

DRUGS (10)
  1. PANTOPRAZOLE [Suspect]
     Indication: GASTROOESOPHAGEAL REFLUX DISEASE
     Dosage: 40 MG 1-2 TABLETS DAILY
     Route: 048
     Dates: start: 20031224
  2. PANTOPRAZOLE [Suspect]
     Dosage: ^CUTTING THE PANTOPRAZOLE TABLETS IN THIRDS AND HALVES^
     Route: 048
  3. PANTOPRAZOLE [Suspect]
     Dosage: ^CUTTING THE PANTOPRAZOLE TABLETS IN THIRDS AND HALVES^
     Route: 048
     Dates: start: 20100507
  4. ACETAMINOPHEN [Concomitant]
  5. CALCIUM [Concomitant]
  6. PREMARIN [Concomitant]
  7. VITAMIN B-12 [Concomitant]
  8. VITAMIN B COMPLEX CAP [Concomitant]
  9. VITAMINS [Concomitant]
  10. VITAMIN D [Concomitant]

REACTIONS (8)
  - ADVERSE EVENT [None]
  - DEPRESSION [None]
  - FEELING ABNORMAL [None]
  - INTENTIONAL DRUG MISUSE [None]
  - MOOD ALTERED [None]
  - PAIN IN EXTREMITY [None]
  - SENSATION OF HEAVINESS [None]
  - WRONG TECHNIQUE IN DRUG USAGE PROCESS [None]
